FAERS Safety Report 8860901 (Version 4)
Quarter: 2013Q1

REPORT INFORMATION
  Report Type: Spontaneous
  Country: US (occurrence: US)
  Receive Date: 20121026
  Receipt Date: 20130120
  Transmission Date: 20140127
  Serious: Yes (Hospitalization, Other)
  Sender: FDA-Public Use
  Company Number: US-009507513-1210USA010031

PATIENT
  Age: 32 Year
  Sex: Female
  Weight: 100.68 kg

DRUGS (3)
  1. IMPLANON [Suspect]
     Indication: CONTRACEPTION
     Dosage: 1 ROD
     Route: 059
     Dates: start: 20121012, end: 20121017
  2. SERTRALINE HYDROCHLORIDE [Concomitant]
  3. VITAMINS (UNSPECIFIED) [Concomitant]

REACTIONS (3)
  - Medical device removal [Recovered/Resolved]
  - Staphylococcal skin infection [Recovered/Resolved]
  - Implant site infection [Recovered/Resolved]
